FAERS Safety Report 6401583-2 (Version None)
Quarter: 2009Q4

REPORT INFORMATION
  Report Type: 
  Country: None (occurrence: None)
  Receive Date: 20091015
  Receipt Date: 20091006
  Transmission Date: 20100525
  Serious: Yes (Death, Life-Threatening)
  Sender: FDA-Public Use
  Company Number: AT-AVENTIS-200920669GDDC

PATIENT
  Age: 50 Year
  Sex: Female

DRUGS (6)
  1. DOCETAXEL [Suspect]
     Indication: BREAST CANCER
     Route: 042
     Dates: start: 20020913, end: 20021115
  2. DAUNORUBICIN HYDROCHLORIDE [Suspect]
     Indication: BREAST CANCER
     Dates: start: 20020619, end: 20020823
  3. CYCLOPHOSPHAMIDE [Suspect]
     Indication: BREAST CANCER
     Dates: start: 20020619, end: 20020823
  4. ZOFRAN [Concomitant]
     Route: 042
     Dates: start: 20021115, end: 20021115
  5. FORTECORTIN                        /00016001/ [Concomitant]
     Dates: start: 20021116, end: 20021116
  6. UNKNOWN DRUG [Concomitant]

REACTIONS (2)
  - GINGIVAL HYPERPLASIA [None]
  - MYELOID LEUKAEMIA [None]
